FAERS Safety Report 14663842 (Version 4)
Quarter: 2018Q3

REPORT INFORMATION
  Report Type: Spontaneous
  Country: US (occurrence: US)
  Receive Date: 20180321
  Receipt Date: 20180823
  Transmission Date: 20181010
  Serious: Yes (Death, Other)
  Sender: FDA-Public Use
  Company Number: US-BIOCOMPATIBLES UK LTD-2018BTG01527

PATIENT
  Age: 22 Year
  Sex: Male

DRUGS (3)
  1. DIGIFAB [Suspect]
     Active Substance: OVINE DIGOXIN IMMUNE FAB
     Dosage: 10 VIALS, 400 MG
  2. DIGIFAB [Suspect]
     Active Substance: OVINE DIGOXIN IMMUNE FAB
     Indication: EXPOSURE TO TOXIC AGENT
     Dosage: 5 VIALS, 200 MG
     Route: 042
  3. DIGIFAB [Suspect]
     Active Substance: OVINE DIGOXIN IMMUNE FAB
     Dosage: 5 VIALS, 200 MG

REACTIONS (8)
  - Bradycardia [Unknown]
  - Off label use [Unknown]
  - Atrioventricular block [Unknown]
  - Drug ineffective [Unknown]
  - Pulse absent [Unknown]
  - Unresponsive to stimuli [Unknown]
  - Completed suicide [Fatal]
  - Hyperkalaemia [Unknown]
